FAERS Safety Report 8541656-1 (Version None)
Quarter: 2012Q3

REPORT INFORMATION
  Report Type: 
  Country: None (occurrence: None)
  Receive Date: 20120726
  Receipt Date: 20120717
  Transmission Date: 20120928
  Serious: Yes (Congenital Anomaly)
  Sender: FDA-Public Use
  Company Number: US-GLAXOSMITHKLINE-A0987015A

PATIENT
  Sex: Male
  Weight: 3.2 kg

DRUGS (2)
  1. PROZAC [Concomitant]
     Dosage: 20MG PER DAY
  2. PAXIL [Suspect]
     Indication: PANIC ATTACK
     Route: 064

REACTIONS (2)
  - FOETAL EXPOSURE DURING PREGNANCY [None]
  - TALIPES [None]
